FAERS Safety Report 5474392-9 (Version None)
Quarter: 2007Q4

REPORT INFORMATION
  Report Type: 
  Country: None (occurrence: None)
  Receive Date: 20071002
  Receipt Date: 20070924
  Transmission Date: 20080405
  Serious: Yes (Hospitalization, Other)
  Sender: FDA-Public Use
  Company Number: DE-AVENTIS-200712407DE

PATIENT
  Sex: Female

DRUGS (1)
  1. ENOXAPARIN SODIUM [Suspect]
     Dosage: DOSE: NOT REPORTED
     Dates: start: 20070801

REACTIONS (3)
  - HAEMORRHAGE [None]
  - INTRA-UTERINE DEATH [None]
  - NAUSEA [None]
